FAERS Safety Report 24785769 (Version 2)
Quarter: 2025Q1

REPORT INFORMATION
  Report Type: Spontaneous
  Country: US (occurrence: US)
  Receive Date: 20241229
  Receipt Date: 20250108
  Transmission Date: 20250409
  Serious: No
  Sender: SANOFI AVENTIS
  Company Number: US-SA-2024SA382743

PATIENT
  Age: 28 Year
  Sex: Male

DRUGS (1)
  1. FABRAZYME [Suspect]
     Active Substance: AGALSIDASE BETA
     Indication: Fabry^s disease

REACTIONS (8)
  - Fibrin D dimer increased [Unknown]
  - Blood potassium decreased [Unknown]
  - Blood albumin decreased [Unknown]
  - Blood calcium decreased [Unknown]
  - Blood urea decreased [Unknown]
  - HIV test positive [Unknown]
  - Anaemia [Unknown]
  - Pain [Unknown]

NARRATIVE: CASE EVENT DATE: 20241213
